FAERS Safety Report 4473075-1 (Version None)
Quarter: 2004Q4

REPORT INFORMATION
  Report Type: 
  Country: None (occurrence: None)
  Receive Date: 20041013
  Receipt Date: 20041008
  Transmission Date: 20050328
  Serious: Yes (Other)
  Sender: FDA-Public Use
  Company Number: ZA-GLAXOSMITHKLINE-B0347709A

PATIENT
  Sex: Male

DRUGS (3)
  1. LAMICTIN [Suspect]
     Indication: EPILEPSY
     Route: 065
  2. PROPOFOL [Concomitant]
     Indication: SEDATION
  3. CLOTHIAPINE [Concomitant]
     Indication: SEDATION

REACTIONS (3)
  - DRUG INTERACTION [None]
  - OXYGEN SATURATION DECREASED [None]
  - RESPIRATORY DEPRESSION [None]
